APPROVED DRUG PRODUCT: LIDOCAINE HYDROCHLORIDE
Active Ingredient: LIDOCAINE HYDROCHLORIDE
Strength: 1.5%
Dosage Form/Route: INJECTABLE;INJECTION
Application: A088330 | Product #001
Applicant: HOSPIRA INC
Approved: May 17, 1984 | RLD: No | RS: No | Type: DISCN